FAERS Safety Report 6664775-3 (Version None)
Quarter: 2010Q1

REPORT INFORMATION
  Report Type: 
  Country: None (occurrence: None)
  Receive Date: 20100330
  Receipt Date: 20100322
  Transmission Date: 20100710
  Serious: Yes (Life-Threatening)
  Sender: FDA-Public Use
  Company Number: 2010US000966

PATIENT
  Age: 45 Year
  Sex: Female
  Weight: 109 kg

DRUGS (34)
  1. AMBISOME [Suspect]
     Indication: FUNGAL INFECTION
     Dosage: 1 MG, TOTAL DOSE, 360 MG UID/QD, IV NOS
     Dates: start: 20100303, end: 20100303
  2. AMBISOME [Suspect]
     Indication: FUNGAL INFECTION
     Dosage: 1 MG, TOTAL DOSE, 360 MG UID/QD, IV NOS
     Dates: start: 20100303, end: 20100304
  3. CEFAZIDIME PENTAHYDRATE [Concomitant]
  4. MEROPENEM [Concomitant]
  5. ACYCLOVIR SODIUM [Concomitant]
  6. CHLORHEXIDINE GLUCONATE [Concomitant]
  7. CHLORPHENIRAMINE MALEATE [Concomitant]
  8. CYCLOSPORINE [Concomitant]
  9. CITRIC ACID [Concomitant]
  10. CLARITHROMYCIN [Concomitant]
  11. CODEINE SULFATE [Concomitant]
  12. COLISTIMETHATE SODIUM [Concomitant]
  13. CYCLIZINE [Concomitant]
  14. DAPTOMYCIN [Concomitant]
  15. DOCUSATE SODIUM [Concomitant]
  16. FLUDARABINE PHOSPHATE [Concomitant]
  17. HEPARIN SODIUM [Concomitant]
  18. HYDROCORTISONE [Concomitant]
  19. ITRACONAZOLE [Concomitant]
  20. LANSOPRAZOLE [Concomitant]
  21. LENOGRASTIM [Concomitant]
  22. CAMPATH [Concomitant]
  23. MELFALAN [Concomitant]
  24. METOCLOPRAMIDE HYDROCHLORIDE [Concomitant]
  25. NEOMYCIN [Concomitant]
  26. NICOTINE [Concomitant]
  27. NORETHISTERONE [Concomitant]
  28. ONDANSETRON [Concomitant]
  29. ORAMORPH SR [Concomitant]
  30. PARACETAMOL [Concomitant]
  31. SALBUTAMOL [Concomitant]
  32. SENNA (SENNA ALEXANDRINA) [Concomitant]
  33. TAUROLIDINE [Concomitant]
  34. IMMUNOSUPPRESSIVE AGENTS [Concomitant]

REACTIONS (8)
  - ANAPHYLACTOID REACTION [None]
  - HAEMORRHAGE SUBCUTANEOUS [None]
  - MULTI-ORGAN FAILURE [None]
  - NEUTROPENIC SEPSIS [None]
  - PLATELET COUNT DECREASED [None]
  - RESPIRATORY FAILURE [None]
  - SKIN DISCOLOURATION [None]
  - TACHYCARDIA [None]
